FAERS Safety Report 15292431 (Version 2)
Quarter: 2018Q3

REPORT INFORMATION
  Report Type: Spontaneous
  Country: US (occurrence: US)
  Receive Date: 20180818
  Receipt Date: 20180915
  Transmission Date: 20181010
  Serious: No
  Sender: FDA-Public Use
  Company Number: US-009507513-1808USA007098

PATIENT
  Age: 24 Year
  Sex: Female

DRUGS (1)
  1. NEXPLANON [Suspect]
     Active Substance: ETONOGESTREL
     Indication: CONTRACEPTION
     Dosage: 1 DF(68 MG), EVERY 3 YEARS
     Route: 059
     Dates: start: 20180814

REACTIONS (2)
  - Breast feeding [Unknown]
  - No adverse event [Unknown]

NARRATIVE: CASE EVENT DATE: 20180815
